FAERS Safety Report 6612280-2 (Version None)
Quarter: 2010Q1

REPORT INFORMATION
  Report Type: 
  Country: None (occurrence: None)
  Receive Date: 20100303
  Receipt Date: 20100226
  Transmission Date: 20100710
  Serious: Yes (Other)
  Sender: FDA-Public Use
  Company Number: CHPA2008US06693

PATIENT
  Age: 53 Year
  Sex: Female

DRUGS (2)
  1. EXCEDRIN (MIGRAINE) [Suspect]
     Indication: BACK PAIN
     Dosage: 2 DF, TID
     Route: 048
     Dates: start: 20030101
  2. EXCEDRIN (MIGRAINE) [Suspect]
     Indication: HEADACHE
     Dosage: 2 DF, QD PRN
     Route: 048
     Dates: start: 20090101, end: 20100201

REACTIONS (5)
  - CHEST PAIN [None]
  - CHOKING SENSATION [None]
  - MYOCARDIAL INFARCTION [None]
  - PALLOR [None]
  - PHARYNGEAL OEDEMA [None]
